FAERS Safety Report 9015586 (Version 1)
Quarter: 2013Q1

REPORT INFORMATION
  Report Type: Spontaneous
  Country: US (occurrence: US)
  Receive Date: 20130116
  Receipt Date: 20130116
  Transmission Date: 20140127
  Serious: Yes (Disabling, Other)
  Sender: FDA-Public Use
  Company Number: US-009507513-1012USA00487

PATIENT
  Age: 24 Month
  Sex: Female
  Weight: 11.34 kg

DRUGS (1)
  1. SINGULAIR [Suspect]
     Indication: ASTHMA
     Dosage: 4 MG, QD
     Route: 048
     Dates: start: 20100115, end: 20100121

REACTIONS (6)
  - Mood swings [Unknown]
  - Crying [Unknown]
  - Emotional distress [Unknown]
  - Product quality issue [Unknown]
  - Anxiety [Unknown]
  - Insomnia [Unknown]
